FAERS Safety Report 10915677 (Version 1)
Quarter: 2015Q1

REPORT INFORMATION
  Report Type: Spontaneous
  Country: None (occurrence: None)
  Receive Date: 20150311
  Receipt Date: 20150311
  Transmission Date: 20150721
  Serious: Yes (Hospitalization)
  Sender: FDA-Public Use
  Company Number: None

PATIENT
  Age: 47 Year
  Sex: Male
  Weight: 114.31 kg

DRUGS (5)
  1. DIVALPROEX [Concomitant]
     Active Substance: DIVALPROEX SODIUM
  2. SIMVASTATIN. [Suspect]
     Active Substance: SIMVASTATIN
     Indication: HYPERLIPIDAEMIA
     Route: 048
     Dates: start: 20141231, end: 20150105
  3. BUJPROPION [Concomitant]
  4. METAMUCIL [Concomitant]
     Active Substance: PLANTAGO SEED
  5. ARILPIPRAZOLE [Concomitant]

REACTIONS (3)
  - Blood creatine phosphokinase increased [None]
  - Back pain [None]
  - Pain [None]

NARRATIVE: CASE EVENT DATE: 20150106
